FAERS Safety Report 6517791-6 (Version None)
Quarter: 2009Q4

REPORT INFORMATION
  Report Type: 
  Country: None (occurrence: None)
  Receive Date: 20091224
  Receipt Date: 20091215
  Transmission Date: 20100525
  Serious: Yes (Other)
  Sender: FDA-Public Use
  Company Number: US-ELI_LILLY_AND_COMPANY-US200912003974

PATIENT
  Sex: Male

DRUGS (2)
  1. HUMALOG [Suspect]
  2. LANTUS [Concomitant]
     Dosage: 18 U, DAILY (1/D)
     Route: 058
     Dates: start: 20050101

REACTIONS (1)
  - MYOCARDIAL INFARCTION [None]
